FAERS Safety Report 19066067 (Version 1)
Quarter: 2021Q1

REPORT INFORMATION
  Report Type: Report from Study
  Country: US (occurrence: US)
  Receive Date: 20210327
  Receipt Date: 20210327
  Transmission Date: 20210420
  Serious: Yes (Other)
  Sender: FDA-Public Use
  Company Number: NVSC2021US062070

PATIENT
  Age: 66 Year
  Sex: Male

DRUGS (1)
  1. ENTRESTO [Suspect]
     Active Substance: SACUBITRIL\VALSARTAN
     Indication: CARDIAC FAILURE CHRONIC
     Dosage: UNK
     Route: 065
     Dates: start: 20190701

REACTIONS (4)
  - Dependent personality disorder [Unknown]
  - Atrial fibrillation [Unknown]
  - Nephropathy [Unknown]
  - Fatigue [Unknown]

NARRATIVE: CASE EVENT DATE: 20210307
